FAERS Safety Report 5069840-2 (Version None)
Quarter: 2006Q3

REPORT INFORMATION
  Report Type: 
  Country: None (occurrence: None)
  Receive Date: 20060731
  Receipt Date: 20060717
  Transmission Date: 20061208
  Serious: Yes (Other)
  Sender: FDA-Public Use
  Company Number: 2006091193

PATIENT
  Age: 74 Year
  Sex: Male

DRUGS (2)
  1. PREDNISOLONE [Suspect]
     Indication: MUSCLE DISORDER
     Dosage: 70 MG (1 IN 1 D), ORAL
     Route: 048
     Dates: start: 20010101
  2. CHEMOTHERAPY                  (CHEMOTHERAPY NOS) [Concomitant]

REACTIONS (1)
  - SUICIDAL IDEATION [None]
